FAERS Safety Report 9332201 (Version 1)
Quarter: 2013Q2

REPORT INFORMATION
  Report Type: Spontaneous
  Country: US (occurrence: US)
  Receive Date: 20130606
  Receipt Date: 20130606
  Transmission Date: 20140414
  Serious: No
  Sender: FDA-Public Use
  Company Number: US-BIOGENIDEC-2013BI050292

PATIENT
  Sex: Female

DRUGS (3)
  1. TYSABRI [Suspect]
     Indication: MULTIPLE SCLEROSIS
     Route: 042
     Dates: start: 201101, end: 20120719
  2. ROPINIROLE [Concomitant]
  3. CITALOPRAM [Concomitant]

REACTIONS (2)
  - Akathisia [Unknown]
  - Depression [Unknown]
